FAERS Safety Report 7600590-1 (Version None)
Quarter: 2011Q3

REPORT INFORMATION
  Report Type: 
  Country: None (occurrence: None)
  Receive Date: 20110711
  Receipt Date: 20110705
  Transmission Date: 20111222
  Serious: Yes (Hospitalization, Other)
  Sender: FDA-Public Use
  Company Number: US-PFIZER INC-2011152713

PATIENT
  Sex: Female

DRUGS (2)
  1. CHANTIX [Suspect]
     Indication: SMOKING CESSATION THERAPY
     Dosage: UNK
     Route: 048
     Dates: start: 20090201, end: 20090201
  2. CHANTIX [Suspect]
     Dosage: UNK
     Route: 048
     Dates: start: 20110201, end: 20110401

REACTIONS (2)
  - SUICIDE ATTEMPT [None]
  - INTENTIONAL OVERDOSE [None]
